FAERS Safety Report 6703948-8 (Version None)
Quarter: 2010Q2

REPORT INFORMATION
  Report Type: 
  Country: None (occurrence: None)
  Receive Date: 20100430
  Receipt Date: 20100421
  Transmission Date: 20101027
  Serious: Yes (Hospitalization, Other)
  Sender: FDA-Public Use
  Company Number: US-PFIZER INC-2010051745

PATIENT
  Sex: Female

DRUGS (9)
  1. GEODON [Suspect]
     Indication: PSYCHOTIC DISORDER
     Dosage: 20 MG, UNK
     Route: 030
     Dates: start: 20070224
  2. GEODON [Suspect]
     Dosage: 80 MG, UNK
     Route: 048
     Dates: start: 20070224, end: 20070228
  3. RISPERDAL [Suspect]
     Indication: PSYCHOTIC DISORDER
     Dosage: 2MG IN MORNING AND 4MG IN EVENING
     Route: 048
     Dates: start: 20070228
  4. ABILIFY [Suspect]
     Indication: PSYCHOTIC DISORDER
     Dosage: 19.4 MG, UNK
     Route: 030
     Dates: start: 20070226
  5. SEROQUEL [Concomitant]
     Indication: INSOMNIA
     Dosage: 50 MG, UNK
  6. CYMBALTA [Concomitant]
     Indication: DEPRESSION
     Dosage: 30 MG, UNK
     Dates: start: 20070215
  7. CYMBALTA [Concomitant]
     Dosage: 60 MG, UNK
     Dates: start: 20070201
  8. ATIVAN [Concomitant]
     Dosage: 2 MG, AS NEEDED
     Route: 030
  9. ATIVAN [Concomitant]
     Dosage: 1 MG, 3X/DAY
     Route: 042

REACTIONS (4)
  - ANOXIC ENCEPHALOPATHY [None]
  - MEMORY IMPAIRMENT [None]
  - NEUROLEPTIC MALIGNANT SYNDROME [None]
  - RESPIRATORY FAILURE [None]
